FAERS Safety Report 9614438 (Version 1)
Quarter: 2013Q4

REPORT INFORMATION
  Report Type: Report from Study
  Country: GB (occurrence: GB)
  Receive Date: 20131011
  Receipt Date: 20131011
  Transmission Date: 20140711
  Serious: Yes (Other)
  Sender: FDA-Public Use
  Company Number: GB-ACCORD-019857

PATIENT
  Age: 63 Year
  Sex: Male

DRUGS (1)
  1. MITOMYCIN [Suspect]
     Indication: CHEMOTHERAPY

REACTIONS (5)
  - Bladder perforation [Unknown]
  - Ureteric obstruction [Unknown]
  - Urinary incontinence [Not Recovered/Not Resolved]
  - Off label use [Unknown]
  - Extravasation [Unknown]
